FAERS Safety Report 26049263 (Version 1)
Quarter: 2025Q4

REPORT INFORMATION
  Report Type: Spontaneous
  Country: US (occurrence: US)
  Receive Date: 20251115
  Receipt Date: 20251115
  Transmission Date: 20260118
  Serious: Yes (Death, Other)
  Sender: MACLEODS
  Company Number: US-MACLEODS PHARMA-MAC2025056317

PATIENT

DRUGS (8)
  1. LIDOCAINE [Suspect]
     Active Substance: LIDOCAINE
     Indication: Local anaesthesia
     Dosage: LDC 14.3  MG/KG,  SUBCUTANEOUS INFILTRATION
     Route: 065
  2. FENTANYL [Suspect]
     Active Substance: FENTANYL
     Indication: Product used for unknown indication
     Dosage: 150 MICROG IV
     Route: 042
  3. MIDAZOLAM [Suspect]
     Active Substance: MIDAZOLAM
     Indication: Product used for unknown indication
     Route: 065
  4. MIDAZOLAM [Suspect]
     Active Substance: MIDAZOLAM
     Dosage: 5 MG IV
     Route: 042
  5. METHOHEXITAL [Suspect]
     Active Substance: METHOHEXITAL
     Indication: Product used for unknown indication
     Dosage: 40 MG IV
     Route: 042
  6. DROPERIDOL [Suspect]
     Active Substance: DROPERIDOL
     Indication: Product used for unknown indication
     Dosage: 125 MG IV
     Route: 042
  7. EPINEPHRINE [Concomitant]
     Active Substance: EPINEPHRINE
     Indication: Product used for unknown indication
     Route: 065
  8. EPINEPHRINE [Concomitant]
     Active Substance: EPINEPHRINE
     Route: 065

REACTIONS (5)
  - Cardiac arrest [Fatal]
  - Drug interaction [Fatal]
  - Nodal arrhythmia [Unknown]
  - Local anaesthetic systemic toxicity [Unknown]
  - Overdose [Unknown]
